FAERS Safety Report 15244588 (Version 1)
Quarter: 2018Q3

REPORT INFORMATION
  Report Type: Spontaneous
  Country: JP (occurrence: JP)
  Receive Date: 20180806
  Receipt Date: 20180806
  Transmission Date: 20181010
  Serious: Yes (Hospitalization, Other)
  Sender: FDA-Public Use
  Company Number: JP-MYLANLABS-2018M1058799

PATIENT
  Age: 70 Year
  Sex: Female
  Weight: 41 kg

DRUGS (4)
  1. PREDNISOLONE. [Suspect]
     Active Substance: PREDNISOLONE
     Dosage: THERAPY RE?INITIATED DUE TO MUSCULOSKELETAL SYMPTOMS AND CONTINUOUS FEVER (38 DEGREE CELSIUS)
     Route: 048
  2. PREDNISOLONE. [Suspect]
     Active Substance: PREDNISOLONE
     Indication: POLYMYALGIA RHEUMATICA
     Route: 048
  3. PREDNISOLONE. [Suspect]
     Active Substance: PREDNISOLONE
     Dosage: GRADUALLY TAPERED AT LOW DOSES
     Route: 048
  4. AMPICILLIN/SULBACTAM ACTAVIS [Concomitant]
     Active Substance: AMPICILLIN SODIUM\SULBACTAM SODIUM
     Indication: STREPTOCOCCAL INFECTION
     Route: 065

REACTIONS (6)
  - Cerebellar infarction [Recovered/Resolved]
  - Bacteraemia [Recovered/Resolved]
  - Otitis media [Recovered/Resolved]
  - Parkinson^s disease [Unknown]
  - Bezold abscess [Recovered/Resolved]
  - Lemierre syndrome [Recovered/Resolved]
